FAERS Safety Report 24583786 (Version 1)
Quarter: 2024Q4

REPORT INFORMATION
  Report Type: Spontaneous
  Country: US (occurrence: US)
  Receive Date: 20241106
  Receipt Date: 20241106
  Transmission Date: 20250115
  Serious: No
  Sender: BIOGEN
  Company Number: US-BIOGEN-2022BI01089203

PATIENT
  Sex: Male

DRUGS (3)
  1. SPINRAZA [Suspect]
     Active Substance: NUSINERSEN
     Indication: Spinal muscular atrophy
     Dosage: ONCE EVERY 4 MONTHS
     Route: 050
     Dates: start: 20171004
  2. TYLENOL [Concomitant]
     Active Substance: ACETAMINOPHEN
     Indication: Hip surgery
     Route: 050
  3. BENADRYL [Concomitant]
     Active Substance: DIPHENHYDRAMINE HYDROCHLORIDE
     Indication: Hip surgery
     Route: 050

REACTIONS (1)
  - Therapeutic response shortened [Unknown]
